FAERS Safety Report 5932968-6 (Version None)
Quarter: 2008Q4

REPORT INFORMATION
  Report Type: 
  Country: None (occurrence: None)
  Receive Date: 20081027
  Receipt Date: 20081027
  Transmission Date: 20090506
  Serious: Yes (Hospitalization)
  Sender: FDA-Public Use
  Company Number: None

PATIENT
  Age: 74 Year
  Sex: Female

DRUGS (1)
  1. REVLIMID [Suspect]
     Indication: MALIGNANT MELANOMA
     Dosage: 25MG BEDTIME OTHER
     Route: 050

REACTIONS (1)
  - PERICARDITIS [None]
